FAERS Safety Report 9958852 (Version 1)
Quarter: 2014Q1

REPORT INFORMATION
  Report Type: Spontaneous
  Country: GB (occurrence: None)
  Receive Date: 20140227
  Receipt Date: 20140227
  Transmission Date: 20141002
  Serious: Yes (Congenital Anomaly)
  Sender: FDA-Public Use
  Company Number: B0970017A

PATIENT
  Age: 14 Day
  Sex: Male
  Weight: 3.31 kg

DRUGS (6)
  1. PAROXETINE HYDROCHLORIDE [Suspect]
     Indication: PRODUCT USED FOR UNKNOWN INDICATION
     Dosage: 40 MG PER DAY
     Route: 064
     Dates: end: 201305
  2. AMITRIPTYLINE [Concomitant]
  3. DIAZEPAM [Concomitant]
  4. DIHYDROCODEINE [Concomitant]
  5. TRAMADOL HYDROCHLORIDE [Concomitant]
  6. FLUOXETINE [Concomitant]

REACTIONS (4)
  - Ventricular septal defect [None]
  - Heart disease congenital [None]
  - Atrial septal defect [None]
  - Maternal drugs affecting foetus [None]
